FAERS Safety Report 7162434-4 (Version None)
Quarter: 2010Q4

REPORT INFORMATION
  Report Type: 
  Country: None (occurrence: None)
  Receive Date: 20101215
  Receipt Date: 20091103
  Transmission Date: 20110411
  Serious: Yes (Other)
  Sender: FDA-Public Use
  Company Number: US-PFIZER INC-2009283231

PATIENT
  Sex: Female
  Weight: 76.644 kg

DRUGS (11)
  1. LYRICA [Suspect]
     Indication: ANXIETY
     Dosage: 75 MG, 2X/DAY
     Route: 048
     Dates: start: 20081217
  2. PROZAC [Concomitant]
  3. LAMOTRIGINE [Concomitant]
  4. CRESTOR [Concomitant]
     Dosage: 10 MG, 1X/DAY
  5. LISINOPRIL [Concomitant]
     Dosage: 20 MG, 1X/DAY
  6. CLONAZEPAM [Concomitant]
     Dosage: 1.5 MG, 1X/DAY
  7. CLONAZEPAM [Concomitant]
     Dosage: FREQUENCY: 3X/DAY,
  8. WELLBUTRIN XL [Concomitant]
     Dosage: 300 MG, UNK
  9. RISPERIDONE [Concomitant]
     Dosage: 1 MG AT BEDTIME
  10. PROGESTERONE [Concomitant]
     Dosage: 1 MG AT BEDTIME
  11. SYMBYAX [Concomitant]
     Dosage: UNK

REACTIONS (9)
  - ABDOMINAL PAIN UPPER [None]
  - ABNORMAL DREAMS [None]
  - GASTRITIS [None]
  - HEADACHE [None]
  - NAUSEA [None]
  - OEDEMA PERIPHERAL [None]
  - PAIN [None]
  - RHINORRHOEA [None]
  - WITHDRAWAL SYNDROME [None]
